FAERS Safety Report 7235555-5 (Version None)
Quarter: 2011Q1

REPORT INFORMATION
  Report Type: 
  Country: None (occurrence: None)
  Receive Date: 20110120
  Receipt Date: 20110111
  Transmission Date: 20110831
  Serious: Yes (Other)
  Sender: FDA-Public Use
  Company Number: PHHY2011FI02989

PATIENT

DRUGS (1)
  1. LEPONEX [Suspect]

REACTIONS (4)
  - WHITE BLOOD CELL COUNT INCREASED [None]
  - NEUTROPHIL COUNT INCREASED [None]
  - MALAISE [None]
  - DYSSTASIA [None]
